FAERS Safety Report 7321097-5 (Version None)
Quarter: 2011Q1

REPORT INFORMATION
  Report Type: 
  Country: None (occurrence: None)
  Receive Date: 20110228
  Receipt Date: 20110214
  Transmission Date: 20110831
  Serious: Yes (Hospitalization)
  Sender: FDA-Public Use
  Company Number: DK-CELGENEUS-044-C5013-08021575

PATIENT
  Sex: Male

DRUGS (3)
  1. MELPHALAN HYDROCHLORIDE [Suspect]
     Indication: MULTIPLE MYELOMA
     Dosage: 16 MILLIGRAM
     Route: 048
     Dates: start: 20071123
  2. PREDNISONE [Suspect]
     Indication: MULTIPLE MYELOMA
     Dosage: 176 MILLIGRAM
     Route: 048
     Dates: start: 20071123
  3. CC-5013 [Suspect]
     Indication: MULTIPLE MYELOMA
     Dosage: 2 CAPSULE
     Route: 048
     Dates: start: 20071123, end: 20080220

REACTIONS (1)
  - MYOSITIS [None]
